FAERS Safety Report 20534981 (Version 1)
Quarter: 2022Q1

REPORT INFORMATION
  Report Type: Report from Study
  Country: CA (occurrence: CA)
  Receive Date: 20220302
  Receipt Date: 20220302
  Transmission Date: 20220423
  Serious: Yes (Death, Other)
  Sender: FDA-Public Use
  Company Number: CA-SUN PHARMACEUTICAL INDUSTRIES LTD-2022R1-327422

PATIENT
  Age: 5 Day
  Weight: 1.49 kg

DRUGS (4)
  1. LOSARTAN [Suspect]
     Active Substance: LOSARTAN
     Indication: Peripartum cardiomyopathy
     Dosage: UNK
     Route: 064
  2. SPIRONOLACTONE [Suspect]
     Active Substance: SPIRONOLACTONE
     Indication: Peripartum cardiomyopathy
     Dosage: UNK
     Route: 064
  3. PERINDOPRIL [Suspect]
     Active Substance: PERINDOPRIL
     Indication: Peripartum cardiomyopathy
     Dosage: UNK
     Route: 064
  4. LASIX [Suspect]
     Active Substance: FUROSEMIDE
     Indication: Peripartum cardiomyopathy
     Dosage: UNK
     Route: 064

REACTIONS (5)
  - Premature baby [Fatal]
  - Apgar score low [Fatal]
  - Low birth weight baby [Fatal]
  - Hypocalvaria [Fatal]
  - Foetal exposure during pregnancy [Unknown]
